FAERS Safety Report 6124732-2 (Version None)
Quarter: 2009Q1

REPORT INFORMATION
  Report Type: 
  Country: None (occurrence: None)
  Receive Date: 20090319
  Receipt Date: 20090309
  Transmission Date: 20090719
  Serious: Yes (Other)
  Sender: FDA-Public Use
  Company Number: GB-TEVA-187218ISR

PATIENT
  Age: 70 Year
  Sex: Male

DRUGS (2)
  1. CARBOPLATIN [Suspect]
     Indication: METASTASES TO LUNG
     Dates: start: 20080301
  2. GEMCITABINE [Suspect]
     Indication: METASTASES TO LUNG
     Dates: start: 20080301

REACTIONS (1)
  - RECALL PHENOMENON [None]
